FAERS Safety Report 8587570-7 (Version None)
Quarter: 2012Q3

REPORT INFORMATION
  Report Type: 
  Country: None (occurrence: None)
  Receive Date: 20120810
  Receipt Date: 20120726
  Transmission Date: 20120928
  Serious: Yes (Hospitalization, Other)
  Sender: FDA-Public Use
  Company Number: US-009507513-1207USA012073

PATIENT

DRUGS (7)
  1. PEGASYS [Suspect]
     Route: 048
  2. COPEGUS [Suspect]
     Route: 048
  3. NOROXIN [Concomitant]
  4. VICTRELIS [Suspect]
     Route: 048
  5. PANTOPRAZOLE SODIUM [Concomitant]
  6. ALDACTONE [Concomitant]
  7. PROPRANOLOL [Concomitant]

REACTIONS (2)
  - NEUTROPENIA [None]
  - OEDEMA PERIPHERAL [None]
